FAERS Safety Report 13612615 (Version 1)
Quarter: 2017Q2

REPORT INFORMATION
  Report Type: Report from Study
  Country: US (occurrence: US)
  Receive Date: 20170605
  Receipt Date: 20170605
  Transmission Date: 20170830
  Serious: Yes (Other)
  Sender: FDA-Public Use
  Company Number: US-PFIZER INC-2017083665

PATIENT
  Age: 64 Year
  Sex: Female

DRUGS (18)
  1. NEXIUM [Concomitant]
     Active Substance: ESOMEPRAZOLE MAGNESIUM
     Dosage: UNK
  2. POTASSIUM CHLORIDE. [Concomitant]
     Active Substance: POTASSIUM CHLORIDE
     Dosage: UNK
  3. PREVALITE [Concomitant]
     Active Substance: CHOLESTYRAMINE
     Dosage: 4 G, UNK
     Route: 048
  4. DURAGESIC [Concomitant]
     Active Substance: FENTANYL
     Dosage: UNK [50 MCG/HR]
     Route: 062
  5. FEMARA [Concomitant]
     Active Substance: LETROZOLE
     Dosage: UNK
  6. IBRANCE [Suspect]
     Active Substance: PALBOCICLIB
     Indication: BREAST CANCER
     Dosage: 125 MG, CYCLIC (DAILY FOR DAY 1-DAY 21 FOLLOWED BY 7 DAYS OFF EVERY 28 DAYS)
     Route: 048
     Dates: start: 20170208
  7. BACTRIM DS [Concomitant]
     Active Substance: SULFAMETHOXAZOLE\TRIMETHOPRIM
     Dosage: UNK [SULFAMETHOXAZOLE 800 MG]/ [TRIMETHOPRIM 160 MG]
  8. K-TAB [Concomitant]
     Active Substance: POTASSIUM CHLORIDE
     Dosage: UNK
  9. OXYCODONE [Concomitant]
     Active Substance: OXYCODONE
     Dosage: UNK
  10. LETROZOLE. [Concomitant]
     Active Substance: LETROZOLE
     Dosage: UNK
  11. ZOFRAN [Concomitant]
     Active Substance: ONDANSETRON HYDROCHLORIDE
  12. IBRANCE [Suspect]
     Active Substance: PALBOCICLIB
     Indication: BREAST CANCER METASTATIC
     Dosage: 100 MG, CYCLIC [DAILY X 21 DAYS ON, 7 DAYS OFF]
     Route: 048
     Dates: start: 201701
  13. CALCIUM + VITAMIN D3 [Concomitant]
     Active Substance: CALCIUM CARBONATE\CHOLECALCIFEROL
     Dosage: UNK [CALCIUM 500 MG (1250 MG)]/[D3 125 UNIT]
  14. DEXAMETHASONE. [Concomitant]
     Active Substance: DEXAMETHASONE
     Dosage: UNK
  15. DIPHENOXYLATE HCL + ATROPINE SULFATE [Concomitant]
     Active Substance: ATROPINE SULFATE\DIPHENOXYLATE HYDROCHLORIDE
     Dosage: UNK [DIPHENOXYLATE 2.5 MG]/[ATROPINE 0.025 MG]
  16. FLUTICASONE. [Concomitant]
     Active Substance: FLUTICASONE
     Dosage: UNK [50 MCG/ACTUATION]
     Route: 055
  17. FAMOTIDINE. [Concomitant]
     Active Substance: FAMOTIDINE
     Dosage: UNK
  18. XARELTO [Concomitant]
     Active Substance: RIVAROXABAN
     Dosage: UNK

REACTIONS (20)
  - Red blood cell count decreased [Unknown]
  - Skin lesion [Unknown]
  - Arthralgia [Unknown]
  - Constipation [Unknown]
  - White blood cell count decreased [Unknown]
  - Short-bowel syndrome [Not Recovered/Not Resolved]
  - Fatigue [Not Recovered/Not Resolved]
  - Diarrhoea [Unknown]
  - Contusion [Unknown]
  - Leukopenia [Unknown]
  - Dry skin [Unknown]
  - Oral pain [Unknown]
  - Decreased appetite [Unknown]
  - Swelling face [Not Recovered/Not Resolved]
  - Headache [Unknown]
  - Stomatitis [Recovered/Resolved]
  - Insomnia [Not Recovered/Not Resolved]
  - Musculoskeletal pain [Unknown]
  - Pain in jaw [Recovering/Resolving]
  - Malaise [Unknown]
